FAERS Safety Report 9378629 (Version 1)
Quarter: 2013Q2

REPORT INFORMATION
  Report Type: Spontaneous
  Country: FR (occurrence: None)
  Receive Date: 20130626
  Receipt Date: 20130626
  Transmission Date: 20140414
  Serious: Yes (Hospitalization)
  Sender: FDA-Public Use
  Company Number: VAL_02598_2013

PATIENT
  Age: 88 Year
  Sex: Female

DRUGS (5)
  1. PARLODEL [Suspect]
     Indication: PRODUCT USED FOR UNKNOWN INDICATION
     Route: 048
     Dates: start: 201205, end: 20130521
  2. MODOPAR [Concomitant]
  3. EUPRESSYL /00631801/ [Concomitant]
  4. RASILEZ [Concomitant]
  5. PREVISCAN /00789001/ [Concomitant]

REACTIONS (2)
  - Ischaemic ulcer [None]
  - Disease recurrence [None]
